FAERS Safety Report 23741351 (Version 2)
Quarter: 2024Q2

REPORT INFORMATION
  Report Type: Report from Study
  Country: US (occurrence: None)
  Receive Date: 20240415
  Receipt Date: 20240514
  Transmission Date: 20240716
  Serious: Yes (Life-Threatening, Hospitalization, Other)
  Sender: FDA-Public Use
  Company Number: 2023A045477

PATIENT
  Sex: Male

DRUGS (1)
  1. CALQUENCE [Suspect]
     Active Substance: ACALABRUTINIB
     Indication: Chronic lymphocytic leukaemia
     Route: 048

REACTIONS (15)
  - Pneumothorax [Unknown]
  - Syncope [Unknown]
  - Intestinal mucosal tear [Unknown]
  - White blood cell count abnormal [Unknown]
  - Pericardial effusion [Unknown]
  - Blood sodium decreased [Unknown]
  - Hyponatraemia [Unknown]
  - Pulmonary oedema [Unknown]
  - Staphylococcal infection [Unknown]
  - Product use complaint [Unknown]
  - Intestinal pseudo-obstruction [Unknown]
  - Decreased appetite [Unknown]
  - Malaise [Unknown]
  - Thirst [Unknown]
  - Constipation [Unknown]
